FAERS Safety Report 7583044-0 (Version None)
Quarter: 2011Q2

REPORT INFORMATION
  Report Type: 
  Country: None (occurrence: None)
  Receive Date: 20110630
  Receipt Date: 20110620
  Transmission Date: 20111010
  Serious: Yes (Death)
  Sender: FDA-Public Use
  Company Number: GB-PURDUE-GBR-2011-0008422

PATIENT
  Age: 39 Year
  Sex: Male

DRUGS (2)
  1. MORPHINE SULFATE [Suspect]
     Indication: PRODUCT USED FOR UNKNOWN INDICATION
     Route: 065
  2. CLOZAPINE [Suspect]
     Indication: SCHIZOPHRENIA
     Dosage: 450 MG, UNK
     Route: 048
     Dates: start: 20010802

REACTIONS (4)
  - CIRCULATORY COLLAPSE [None]
  - CONVULSION [None]
  - ADENOCARCINOMA [None]
  - METASTASES TO CENTRAL NERVOUS SYSTEM [None]
